FAERS Safety Report 7183364-8 (Version None)
Quarter: 2010Q4

REPORT INFORMATION
  Report Type: 
  Country: None (occurrence: None)
  Receive Date: 20101220
  Receipt Date: 20101220
  Transmission Date: 20110411
  Serious: Yes (Hospitalization)
  Sender: FDA-Public Use
  Company Number: None

PATIENT
  Age: 66 Year
  Sex: Female
  Weight: 119.4 kg

DRUGS (12)
  1. ASPIRIN [Suspect]
     Indication: ATRIAL FIBRILLATION
     Dosage: 81 MG DAILY PO CHRONIC
     Route: 048
  2. COUMADIN [Suspect]
     Indication: ATRIAL FIBRILLATION
     Dosage: 4,5 MG DAILY PO CHRONIC
     Route: 048
  3. GLIPIZIDE [Concomitant]
  4. PERCOCET [Concomitant]
  5. GABAPENTIN [Concomitant]
  6. OSTEO BIFLEX PLUS [Concomitant]
  7. AMIODARONE [Concomitant]
  8. POTASSIUM CHLORIDE [Concomitant]
  9. BUMEX [Concomitant]
  10. CARDIZEM [Concomitant]
  11. AMIODARONE [Concomitant]
  12. WARFARIN [Concomitant]

REACTIONS (4)
  - BRONCHITIS [None]
  - COAGULOPATHY [None]
  - INTERNATIONAL NORMALISED RATIO INCREASED [None]
  - RENAL FAILURE ACUTE [None]
